FAERS Safety Report 18887959 (Version 2)
Quarter: 2021Q1

REPORT INFORMATION
  Report Type: Report from Study
  Country: None (occurrence: US)
  Receive Date: 20210212
  Receipt Date: 20210322
  Transmission Date: 20210420
  Serious: Yes (Other)
  Sender: FDA-Public Use
  Company Number: US-ABBVIE-21K-163-3772767-00

PATIENT
  Age: 85 Year
  Sex: Female
  Weight: 70.37 kg

DRUGS (4)
  1. LOSARTAN. [Concomitant]
     Active Substance: LOSARTAN
     Indication: BLOOD PRESSURE MANAGEMENT
  2. FIBER [Concomitant]
     Active Substance: PSYLLIUM HUSK
     Indication: SUPPLEMENTATION THERAPY
  3. SIMVASTATIN. [Concomitant]
     Active Substance: SIMVASTATIN
     Indication: BLOOD CHOLESTEROL ABNORMAL
  4. CREON [Suspect]
     Active Substance: PANCRELIPASE AMYLASE\PANCRELIPASE LIPASE\PANCRELIPASE PROTEASE
     Indication: PANCREATITIS CHRONIC
     Dosage: 1 CAPSULE WITH MEALS ?1 CAPSULE WITH SNACKS
     Route: 048
     Dates: start: 2017

REACTIONS (2)
  - Urinary tract infection [Recovering/Resolving]
  - Fear [Recovered/Resolved]

NARRATIVE: CASE EVENT DATE: 202001
